FAERS Safety Report 5082009-0 (Version None)
Quarter: 2006Q3

REPORT INFORMATION
  Report Type: 
  Country: None (occurrence: None)
  Receive Date: 20060811
  Receipt Date: 20060726
  Transmission Date: 20061208
  Serious: Yes (Other)
  Sender: FDA-Public Use
  Company Number: 227778

PATIENT
  Age: 17 Year
  Sex: Male
  Weight: 81 kg

DRUGS (5)
  1. XOLAIR [Suspect]
     Indication: ASTHMA
     Dosage: 300 MG, Q2W, SUBCUTANEOUS
     Route: 058
     Dates: start: 20060324
  2. ANTIASTHMATIC DRUG NOS (ANTIASTHMATIC DRUG NOS) [Concomitant]
  3. SYMBICORT (BUDESONIDE, FORMOTEROL FUMARATE) [Concomitant]
  4. VENTOLINE (ALBUTEROL/ALBUTEROL SULFATE) [Concomitant]
  5. ANTIHISTAMINES (ANTIHISTAMINES NOS) [Concomitant]

REACTIONS (3)
  - ASTHMA [None]
  - COUGH [None]
  - SYNCOPE [None]
